FAERS Safety Report 6522626-1 (Version None)
Quarter: 2009Q4

REPORT INFORMATION
  Report Type: 
  Country: None (occurrence: None)
  Receive Date: 20091224
  Receipt Date: 20091222
  Transmission Date: 20100525
  Serious: Yes (Other)
  Sender: FDA-Public Use
  Company Number: SPV1-2009-02488

PATIENT
  Age: 76 Year
  Sex: Male
  Weight: 74.4 kg

DRUGS (5)
  1. LIALDA [Suspect]
     Indication: COLITIS
     Dosage: 4.8 G, 1X/DAY:QD, ORAL
     Route: 048
     Dates: start: 20091202, end: 20091205
  2. COUMADIN [Concomitant]
  3. LIPITOR [Concomitant]
  4. LANOXIN [Concomitant]
  5. DIOVAN HCT [Concomitant]

REACTIONS (5)
  - ACTIVATED PARTIAL THROMBOPLASTIN TIME PROLONGED [None]
  - CONJUNCTIVAL HAEMORRHAGE [None]
  - HAEMATURIA [None]
  - INTERNATIONAL NORMALISED RATIO INCREASED [None]
  - PROTHROMBIN TIME PROLONGED [None]
